FAERS Safety Report 4793467-0 (Version None)
Quarter: 2005Q4

REPORT INFORMATION
  Report Type: 
  Country: None (occurrence: None)
  Receive Date: 20051011
  Receipt Date: 20050425
  Transmission Date: 20060501
  Serious: No
  Sender: FDA-Public Use
  Company Number: US-BRISTOL-MYERS SQUIBB COMPANY-12945218

PATIENT
  Age: 63 Year
  Sex: Female
  Weight: 91 kg

DRUGS (3)
  1. GLUCOPHAGE XR [Suspect]
     Indication: DIABETES MELLITUS
  2. PREMARIN [Concomitant]
  3. PROVERA [Concomitant]

REACTIONS (4)
  - ABDOMINAL DISTENSION [None]
  - DIARRHOEA [None]
  - ENDOMETRIAL HYPERTROPHY [None]
  - FLATULENCE [None]
